FAERS Safety Report 6313770-2 (Version None)
Quarter: 2009Q3

REPORT INFORMATION
  Report Type: 
  Country: None (occurrence: None)
  Receive Date: 20090817
  Receipt Date: 20090817
  Transmission Date: 20100115
  Serious: Yes (Other)
  Sender: FDA-Public Use
  Company Number: None

PATIENT
  Age: 60 Year
  Sex: Male
  Weight: 117.9352 kg

DRUGS (2)
  1. ADDERALL XR 20 [Suspect]
     Indication: ADVERSE REACTION
     Dosage: TWO -2- DAILY PO
     Route: 048
     Dates: start: 20090501, end: 20090801
  2. ADDERALL XR 20 [Suspect]
     Indication: MENTAL DISORDER
     Dosage: TWO -2- DAILY PO
     Route: 048
     Dates: start: 20090501, end: 20090801

REACTIONS (14)
  - ABNORMAL BEHAVIOUR [None]
  - AGITATION [None]
  - ANGER [None]
  - ANGIOEDEMA [None]
  - DEPRESSION [None]
  - DISTURBANCE IN ATTENTION [None]
  - FATIGUE [None]
  - HAEMATOCHEZIA [None]
  - IMPAIRED DRIVING ABILITY [None]
  - PRODUCT SUBSTITUTION ISSUE [None]
  - RECTAL HAEMORRHAGE [None]
  - ROAD TRAFFIC ACCIDENT [None]
  - SOMNAMBULISM [None]
  - URTICARIA [None]
